FAERS Safety Report 9246700 (Version 2)
Quarter: 2013Q3

REPORT INFORMATION
  Report Type: Spontaneous
  Country: US (occurrence: US)
  Receive Date: 20130422
  Receipt Date: 20130726
  Transmission Date: 20140515
  Serious: No
  Sender: FDA-Public Use
  Company Number: US-B.I. PHARMACEUTICALS,INC./RIDGEFIELD-2013-BI-09945BP

PATIENT
  Age: 70 Year
  Sex: Female
  Weight: 51 kg

DRUGS (11)
  1. SPIRIVA [Suspect]
     Indication: CHRONIC OBSTRUCTIVE PULMONARY DISEASE
     Dosage: 18 MCG
     Route: 055
     Dates: start: 2007
  2. COREG [Concomitant]
     Indication: HYPERTENSION
     Dosage: 25 MG
     Route: 048
  3. NORVASC [Concomitant]
     Indication: HYPERTENSION
     Dosage: 5 MG
     Route: 048
  4. LISINOPRIL [Concomitant]
     Indication: HYPERTENSION
     Dosage: 40 MG
     Route: 048
  5. LORAZEPAM [Concomitant]
     Indication: ANXIETY
     Dosage: 0.5 MG
     Route: 048
  6. FENOFIBRATE [Concomitant]
     Indication: BLOOD CHOLESTEROL INCREASED
     Dosage: 160 MG
     Route: 048
  7. FENOFIBRATE [Concomitant]
     Indication: BLOOD TRIGLYCERIDES INCREASED
  8. PAROXETINE [Concomitant]
     Indication: ANXIETY
     Dosage: 10 MG
     Route: 048
  9. HYDROCHLOROTHIAZIDE [Concomitant]
     Indication: HYPERTENSION
     Dosage: 25 MG
     Route: 048
  10. DULERA [Concomitant]
     Indication: CHRONIC OBSTRUCTIVE PULMONARY DISEASE
     Route: 055
     Dates: start: 201302
  11. PRO AIR [Concomitant]
     Indication: INHALATION THERAPY
     Route: 055

REACTIONS (6)
  - Product quality issue [Recovered/Resolved]
  - Product quality issue [Recovered/Resolved]
  - Dyspnoea [Not Recovered/Not Resolved]
  - Product quality issue [Recovered/Resolved]
  - Product quality issue [Recovered/Resolved]
  - Asthma [Recovered/Resolved]
